FAERS Safety Report 15906390 (Version 2)
Quarter: 2019Q2

REPORT INFORMATION
  Report Type: Report from Study
  Country: US (occurrence: US)
  Receive Date: 20190204
  Receipt Date: 20190517
  Transmission Date: 20190711
  Serious: Yes (Other)
  Sender: FDA-Public Use
  Company Number: US-SA-2019SA023483

PATIENT
  Age: 36 Year
  Sex: Female

DRUGS (1)
  1. TERIFLUNOMIDE. [Suspect]
     Active Substance: TERIFLUNOMIDE
     Indication: MULTIPLE SCLEROSIS
     Dosage: 14 MG, QD
     Route: 048
     Dates: start: 20181226, end: 20190130

REACTIONS (10)
  - Cognitive disorder [Recovering/Resolving]
  - Menstruation irregular [Unknown]
  - Therapy change [Not Recovered/Not Resolved]
  - Restless legs syndrome [Unknown]
  - Emotional disorder [Recovering/Resolving]
  - Multiple sclerosis [Unknown]
  - Feeling abnormal [Recovering/Resolving]
  - Memory impairment [Recovering/Resolving]
  - Diarrhoea [Unknown]
  - Alopecia [Recovering/Resolving]

NARRATIVE: CASE EVENT DATE: 20190201
